FAERS Safety Report 11193250 (Version 1)
Quarter: 2015Q2

REPORT INFORMATION
  Report Type: Report from Study
  Country: US (occurrence: None)
  Receive Date: 20150603
  Receipt Date: 20150603
  Transmission Date: 20150821
  Serious: No
  Sender: FDA-Public Use
  Company Number: 2015TASUS000669

PATIENT
  Age: 52 Year
  Sex: Female
  Weight: 99.8 kg

DRUGS (3)
  1. HETLIOZ [Suspect]
     Active Substance: TASIMELTEON
     Indication: CIRCADIAN RHYTHM SLEEP DISORDER
     Route: 048
     Dates: start: 20140630, end: 20150105
  2. METOPROLOL (METOPROLOL TARTRATE) [Concomitant]
     Active Substance: METOPROLOL TARTRATE
  3. ZOLOFT [Concomitant]
     Active Substance: SERTRALINE HYDROCHLORIDE

REACTIONS (2)
  - Middle insomnia [None]
  - Drug ineffective [None]
